FAERS Safety Report 13911544 (Version 1)
Quarter: 2017Q3

REPORT INFORMATION
  Report Type: Spontaneous
  Country: US (occurrence: US)
  Receive Date: 20170828
  Receipt Date: 20170828
  Transmission Date: 20171127
  Serious: No
  Sender: FDA-Public Use
  Company Number: US-ROCHE-1142472

PATIENT
  Age: 38 Year
  Sex: Female

DRUGS (1)
  1. NUTROPIN AQ [Suspect]
     Active Substance: SOMATROPIN
     Indication: GROWTH HORMONE DEFICIENCY
     Route: 058
     Dates: start: 19990311

REACTIONS (8)
  - Dry skin [Unknown]
  - Hypercholesterolaemia [Unknown]
  - Fluid retention [Unknown]
  - Fatigue [Unknown]
  - Mood swings [Unknown]
  - Chest pain [Unknown]
  - Weight increased [Unknown]
  - Amnesia [Unknown]

NARRATIVE: CASE EVENT DATE: 19990316
